FAERS Safety Report 20378258 (Version 1)
Quarter: 2022Q1

REPORT INFORMATION
  Report Type: Spontaneous
  Country: US (occurrence: US)
  Receive Date: 20220126
  Receipt Date: 20220126
  Transmission Date: 20220423
  Serious: No
  Sender: FDA-Public Use
  Company Number: US-SA-SAC20220122000103

PATIENT
  Sex: Male

DRUGS (2)
  1. DUPIXENT [Suspect]
     Active Substance: DUPILUMAB
     Indication: Dermatitis atopic
     Dosage: 300MG, QOW
     Route: 058
  2. AMIODARONE [Suspect]
     Active Substance: AMIODARONE

REACTIONS (4)
  - Lacrimation increased [Unknown]
  - Eye irritation [Unknown]
  - Blood thyroid stimulating hormone increased [Unknown]
  - Dry eye [Unknown]
